FAERS Safety Report 4926071-1 (Version None)
Quarter: 2006Q1

REPORT INFORMATION
  Report Type: 
  Country: None (occurrence: None)
  Receive Date: 20060228
  Receipt Date: 20050805
  Transmission Date: 20060701
  Serious: Yes (Life-Threatening, Hospitalization, Other)
  Sender: FDA-Public Use
  Company Number: US-GLAXOSMITHKLINE-A0569402A

PATIENT
  Age: 33 Year
  Sex: Female
  Weight: 63.6 kg

DRUGS (4)
  1. LAMICTAL [Suspect]
     Indication: BIPOLAR DISORDER
     Route: 048
     Dates: start: 20050531, end: 20050608
  2. LEXAPRO [Concomitant]
     Dates: start: 20040101
  3. SEROQUEL [Concomitant]
     Route: 048
     Dates: start: 20040101
  4. DOSTINEX [Concomitant]
     Indication: PITUITARY CYST
     Dates: start: 20000101

REACTIONS (4)
  - CONFUSIONAL STATE [None]
  - HEADACHE [None]
  - RASH MACULO-PAPULAR [None]
  - RASH PRURITIC [None]
